FAERS Safety Report 14317326 (Version 1)
Quarter: 2017Q4

REPORT INFORMATION
  Report Type: Other
  Country: GB (occurrence: GB)
  Receive Date: 20171222
  Receipt Date: 20171222
  Transmission Date: 20180321
  Serious: Yes (Hospitalization, Disabling, Other)
  Sender: FDA-Public Use
  Company Number: GB-MACLEODS PHARMACEUTICALS US LTD-MAC2016003160

PATIENT

DRUGS (3)
  1. ARIPIPRAZOLE 20 MG TABLET [Suspect]
     Active Substance: ARIPIPRAZOLE
     Indication: ACUTE PSYCHOSIS
     Dosage: 20 MG, UNK
     Route: 048
     Dates: start: 201605, end: 20160809
  2. DOSULEPIN HYDROCHLORIDE [Suspect]
     Active Substance: DOTHIEPIN HYDROCHLORIDE
     Indication: PRODUCT USED FOR UNKNOWN INDICATION
     Dosage: UNK
     Route: 065
  3. TRIMETHOPRIM. [Suspect]
     Active Substance: TRIMETHOPRIM
     Indication: PRODUCT USED FOR UNKNOWN INDICATION
     Dosage: UNK
     Route: 065

REACTIONS (7)
  - Product use in unapproved indication [Unknown]
  - Extrapyramidal disorder [Recovered/Resolved]
  - Dystonia [Recovered/Resolved]
  - Tremor [Recovered/Resolved]
  - Akinesia [Recovered/Resolved]
  - Muscle rigidity [Recovered/Resolved]
  - Salivary hypersecretion [Recovered/Resolved]

NARRATIVE: CASE EVENT DATE: 20160707
